FAERS Safety Report 5320240-7 (Version None)
Quarter: 2007Q2

REPORT INFORMATION
  Report Type: 
  Country: None (occurrence: None)
  Receive Date: 20070509
  Receipt Date: 20070502
  Transmission Date: 20071010
  Serious: Yes (Life-Threatening)
  Sender: FDA-Public Use
  Company Number: B0469725A

PATIENT
  Age: 65 Year
  Sex: Male

DRUGS (6)
  1. PAROXETINE [Suspect]
     Indication: DEPRESSION
     Route: 048
     Dates: start: 20070313, end: 20070405
  2. ATENOLOL [Concomitant]
     Route: 048
  3. ENALAPRIL [Concomitant]
     Dosage: 20MG PER DAY
     Route: 048
  4. OXYBUTYNIN CHLORIDE [Concomitant]
     Indication: BLADDER DISORDER
     Dosage: 5MG PER DAY
     Route: 048
  5. SIMVASTATIN [Concomitant]
  6. SPIRONOLACTONE [Concomitant]
     Route: 048

REACTIONS (1)
  - SUICIDAL IDEATION [None]
